FAERS Safety Report 8935306 (Version 1)
Quarter: 2012Q4

REPORT INFORMATION
  Report Type: 
  Country: FR (occurrence: FR)
  Receive Date: 20121129
  Receipt Date: 20121129
  Transmission Date: 20130627
  Serious: Yes (Hospitalization)
  Sender: FDA-Public Use
  Company Number: FR-GLAXOSMITHKLINE-B0847251A

PATIENT
  Age: 78 None
  Sex: Female

DRUGS (8)
  1. DEROXAT [Suspect]
     Indication: PRODUCT USED FOR UNKNOWN INDICATION
     Dosage: 20MG Per day
     Route: 048
  2. TRAMADOL [Suspect]
     Indication: PRODUCT USED FOR UNKNOWN INDICATION
     Dosage: 250MG per day
     Route: 048
     Dates: end: 20121025
  3. DUROGESIC [Concomitant]
     Dosage: 150UGH Every 3 days
     Route: 062
  4. XANAX [Concomitant]
     Route: 048
  5. NISISCO [Concomitant]
     Dosage: 1UNIT Per day
     Route: 048
  6. KARDEGIC [Concomitant]
     Dosage: 160MG Per day
     Route: 048
  7. CACIT D3 [Concomitant]
     Dosage: 1UNIT Twice per day
     Route: 048
  8. ZOPICLONE [Concomitant]
     Dosage: 7.5MG Per day
     Route: 048

REACTIONS (9)
  - Serotonin syndrome [Recovered/Resolved]
  - Clonus [Recovered/Resolved]
  - Ataxia [Recovered/Resolved]
  - Muscle rigidity [Recovered/Resolved]
  - Hyperhidrosis [Recovered/Resolved]
  - Yawning [Recovered/Resolved]
  - Back pain [Recovered/Resolved]
  - Pain [Recovered/Resolved]
  - Drug interaction [Unknown]
